FAERS Safety Report 14505612 (Version 2)
Quarter: 2018Q1

REPORT INFORMATION
  Report Type: Spontaneous
  Country: US (occurrence: US)
  Receive Date: 20180208
  Receipt Date: 20180322
  Transmission Date: 20180509
  Serious: No
  Sender: FDA-Public Use
  Company Number: US-PFIZER INC-2018056554

PATIENT
  Age: 59 Year
  Sex: Female
  Weight: 49 kg

DRUGS (2)
  1. AROMASIN [Suspect]
     Active Substance: EXEMESTANE
     Indication: BREAST CANCER STAGE IV
     Dosage: 25 MG, 1X/DAY
     Dates: start: 201709
  2. AFINITOR [Concomitant]
     Active Substance: EVEROLIMUS
     Dosage: 10 MG, UNK

REACTIONS (7)
  - Asthenia [Unknown]
  - Fatigue [Recovering/Resolving]
  - Myalgia [Unknown]
  - Back pain [Unknown]
  - Pyrexia [Unknown]
  - Rhinorrhoea [Recovering/Resolving]
  - Influenza [Recovering/Resolving]

NARRATIVE: CASE EVENT DATE: 201801
